FAERS Safety Report 8896638 (Version 2)
Quarter: 2012Q4

REPORT INFORMATION
  Report Type: 
  Country: CA (occurrence: CA)
  Receive Date: 20121108
  Receipt Date: 20121113
  Transmission Date: 20130627
  Serious: Yes (Other)
  Sender: FDA-Public Use
  Company Number: PHHY2012CA102239

PATIENT
  Age: 45 Year
  Sex: Female

DRUGS (5)
  1. CLARITHROMYCIN SANDOZ [Suspect]
     Indication: PNEUMONIA
     Dosage: 500 mg, BID
     Route: 048
     Dates: start: 20121014, end: 20121024
  2. ALCOHOL [Concomitant]
  3. SALBUTAMOL [Concomitant]
     Indication: PNEUMONIA
  4. PROPRANOLOL [Concomitant]
     Dosage: 80 mg, BID
  5. CRESTOR [Concomitant]
     Dosage: 5 mg, QD

REACTIONS (10)
  - Aggression [Recovered/Resolved]
  - Abnormal behaviour [Recovered/Resolved]
  - Headache [Recovered/Resolved]
  - Nausea [Recovered/Resolved]
  - Decreased appetite [Recovered/Resolved]
  - Diarrhoea [Recovered/Resolved]
  - Nightmare [Recovered/Resolved]
  - Anxiety [Recovered/Resolved]
  - Palpitations [Recovered/Resolved]
  - Confusional state [Recovered/Resolved]
